FAERS Safety Report 11237625 (Version 1)
Quarter: 2015Q3

REPORT INFORMATION
  Report Type: Spontaneous
  Country: US (occurrence: US)
  Receive Date: 20150703
  Receipt Date: 20150703
  Transmission Date: 20151125
  Serious: No
  Sender: FDA-Public Use
  Company Number: PHEH2015US012796

PATIENT
  Sex: Female

DRUGS (3)
  1. VIVELLE DOT [Suspect]
     Active Substance: ESTRADIOL
     Dosage: UNK
     Route: 062
  2. MENS ROGAINE [Suspect]
     Active Substance: MINOXIDIL
     Indication: PRODUCT USED FOR UNKNOWN INDICATION
     Route: 065
  3. VIVELLE DOT [Suspect]
     Active Substance: ESTRADIOL
     Indication: PRODUCT USED FOR UNKNOWN INDICATION
     Dosage: 0.25 MG, UNK
     Route: 062
     Dates: start: 201002, end: 201009

REACTIONS (6)
  - Dermatitis [Unknown]
  - Skin burning sensation [Unknown]
  - Hair growth abnormal [Unknown]
  - Pruritus [Unknown]
  - Feeling abnormal [Unknown]
  - Alopecia [Unknown]
